FAERS Safety Report 20087810 (Version 1)
Quarter: 2021Q4

REPORT INFORMATION
  Report Type: Spontaneous
  Country: US (occurrence: US)
  Receive Date: 20211118
  Receipt Date: 20211118
  Transmission Date: 20220303
  Serious: Yes (Other)
  Sender: FDA-Public Use
  Company Number: US-BRISTOL-MYERS SQUIBB COMPANY-BMS-2015-089361

PATIENT
  Age: 69 Year
  Sex: Female

DRUGS (3)
  1. ARIPIPRAZOLE [Suspect]
     Active Substance: ARIPIPRAZOLE
     Indication: Major depression
     Dosage: 5 MG, UNK
     Route: 065
     Dates: start: 2015
  2. LORAZEPAM [Concomitant]
     Active Substance: LORAZEPAM
     Indication: Product used for unknown indication
     Dosage: UNK
     Route: 065
  3. SERTRALINE [Concomitant]
     Active Substance: SERTRALINE HYDROCHLORIDE
     Indication: Product used for unknown indication
     Dosage: 50 MG, UNK
     Route: 065

REACTIONS (12)
  - Syncope [Unknown]
  - Sinusitis [Unknown]
  - Urinary tract infection [Unknown]
  - Dehydration [Unknown]
  - Oral herpes [Unknown]
  - Pharyngitis [Unknown]
  - Memory impairment [Unknown]
  - Confusional state [Unknown]
  - Disturbance in attention [Unknown]
  - Dizziness [Unknown]
  - Nausea [Unknown]
  - Wrong technique in product usage process [Unknown]
